FAERS Safety Report 7396171-8 (Version None)
Quarter: 2011Q2

REPORT INFORMATION
  Report Type: 
  Country: None (occurrence: None)
  Receive Date: 20110406
  Receipt Date: 20110324
  Transmission Date: 20111010
  Serious: Yes (Hospitalization, Other)
  Sender: FDA-Public Use
  Company Number: US-ELI_LILLY_AND_COMPANY-US201011006139

PATIENT
  Sex: Female

DRUGS (12)
  1. CRESTOR [Concomitant]
     Dosage: 10 MG, QD
  2. VITAMIN D [Concomitant]
     Dosage: 50000 U, WEEKLY (1/W)
     Route: 065
  3. NASONEX [Concomitant]
     Dosage: UNK, UNKNOWN
     Route: 045
  4. MULTI-VITAMIN [Concomitant]
     Dosage: UNK, UNKNOWN
     Route: 065
  5. ZESTRIL [Concomitant]
     Dosage: UNK, UNKNOWN
     Route: 065
  6. VITAMIN B-12 [Suspect]
     Dosage: 5000 MG, QD
  7. LOVAZA [Concomitant]
     Dosage: UNK, UNKNOWN
     Route: 065
  8. FORTEO [Suspect]
     Indication: OSTEOPOROSIS
     Dosage: 20 UG, DAILY (1/D)
     Dates: start: 20100701, end: 20101201
  9. CALCIUM [Concomitant]
     Dosage: UNK, UNKNOWN
     Route: 065
  10. TYLENOL (CAPLET) [Concomitant]
     Dosage: UNK, UNKNOWN
     Route: 065
  11. ALBUTEROL [Concomitant]
     Dosage: UNK, UNKNOWN
     Route: 065
  12. VITAMIN B COMPLEX CAP [Concomitant]
     Dosage: UNK, UNKNOWN
     Route: 065

REACTIONS (11)
  - PNEUMONIA [None]
  - ARTHRALGIA [None]
  - PAIN [None]
  - MUSCULOSKELETAL PAIN [None]
  - LUNG DISORDER [None]
  - PAIN IN JAW [None]
  - HEADACHE [None]
  - COLLAPSE OF LUNG [None]
  - BONE PAIN [None]
  - PAIN IN EXTREMITY [None]
  - FEELING ABNORMAL [None]
